FAERS Safety Report 9268241 (Version 2)
Quarter: 2014Q3

REPORT INFORMATION
  Report Type: Report from Study
  Country: US (occurrence: US)
  Receive Date: 20130502
  Receipt Date: 20140704
  Transmission Date: 20150326
  Serious: Yes (Other)
  Sender: FDA-Public Use
  Company Number: US-ALEXION-A201201960

PATIENT

DRUGS (1)
  1. SOLIRIS [Suspect]
     Active Substance: ECULIZUMAB
     Indication: HAEMOLYTIC URAEMIC SYNDROME
     Route: 042

REACTIONS (5)
  - Drug dose omission [Unknown]
  - Haemodialysis [Unknown]
  - Leg amputation [Unknown]
  - Infection [Unknown]
  - Animal bite [Unknown]

NARRATIVE: CASE EVENT DATE: 201209
